FAERS Safety Report 6176625-2 (Version None)
Quarter: 2009Q2

REPORT INFORMATION
  Report Type: 
  Country: None (occurrence: None)
  Receive Date: 20090501
  Receipt Date: 20090423
  Transmission Date: 20091009
  Serious: Yes (Other)
  Sender: FDA-Public Use
  Company Number: CA-ASTRAZENECA-2009UW10479

PATIENT
  Age: 75 Year
  Sex: Female

DRUGS (3)
  1. ARIMIDEX [Suspect]
     Indication: BREAST CANCER
     Route: 048
  2. CALCIUM [Concomitant]
  3. VITAMIN D [Concomitant]

REACTIONS (12)
  - ASTHENIA [None]
  - BALANCE DISORDER [None]
  - BLOOD PRESSURE INCREASED [None]
  - BONE DENSITY DECREASED [None]
  - BONE DISORDER [None]
  - FATIGUE [None]
  - ILL-DEFINED DISORDER [None]
  - MUSCLE SPASMS [None]
  - NASAL CAVITY CANCER [None]
  - NECK INJURY [None]
  - NECK PAIN [None]
  - PRURITUS [None]
